FAERS Safety Report 9887142 (Version 3)
Quarter: 2014Q2

REPORT INFORMATION
  Report Type: Spontaneous
  Country: US (occurrence: US)
  Receive Date: 20140211
  Receipt Date: 20140409
  Transmission Date: 20141212
  Serious: Yes (Hospitalization)
  Sender: FDA-Public Use
  Company Number: US-BIOGENIDEC-2014BI011751

PATIENT
  Age: 38 Year
  Sex: Female

DRUGS (2)
  1. TECFIDERA [Suspect]
     Indication: RELAPSING-REMITTING MULTIPLE SCLEROSIS
     Dates: start: 20131118
  2. TYSABRI [Concomitant]
     Indication: MULTIPLE SCLEROSIS
     Route: 042
     Dates: start: 20081215, end: 20130815

REACTIONS (2)
  - Immobile [Not Recovered/Not Resolved]
  - Headache [Not Recovered/Not Resolved]
